FAERS Safety Report 20659994 (Version 1)
Quarter: 2022Q1

REPORT INFORMATION
  Report Type: Spontaneous
  Country: US (occurrence: US)
  Receive Date: 20220331
  Receipt Date: 20220331
  Transmission Date: 20220424
  Serious: No
  Sender: FDA-Public Use
  Company Number: US-SLATE RUN PHARMACEUTICALS-22US001005

PATIENT

DRUGS (13)
  1. POTASSIUM CHLORIDE [Suspect]
     Active Substance: POTASSIUM CHLORIDE
     Indication: Hypokalaemia
     Dosage: 10 MILLIEQUIVALENT, BID
  2. UNSPECIFIED INGREDIENT [Concomitant]
     Active Substance: UNSPECIFIED INGREDIENT
     Indication: Product used for unknown indication
     Route: 042
  3. PROPRANOLOL [Concomitant]
     Active Substance: PROPRANOLOL HYDROCHLORIDE
     Indication: Hypertension
     Dosage: 160 MILLIGRAM, QD
  4. PROPRANOLOL [Concomitant]
     Active Substance: PROPRANOLOL HYDROCHLORIDE
     Dosage: 60 MILLIGRAM, Q 4 HR
  5. POTASSIUM IODIDE [Concomitant]
     Active Substance: POTASSIUM IODIDE
     Indication: Product used for unknown indication
  6. PROPYLTHIOURACIL [Concomitant]
     Active Substance: PROPYLTHIOURACIL
     Indication: Product used for unknown indication
  7. HYDROCORTISONE [Concomitant]
     Active Substance: HYDROCORTISONE
     Indication: Product used for unknown indication
  8. METHIMAZOLE [Concomitant]
     Active Substance: METHIMAZOLE
     Indication: Product used for unknown indication
  9. UNSPECIFIED INGREDIENT [Concomitant]
     Active Substance: UNSPECIFIED INGREDIENT
     Indication: Antiemetic supportive care
  10. POTASSIUM [Concomitant]
     Active Substance: POTASSIUM
     Indication: Product used for unknown indication
     Dosage: MULTIPLE
     Route: 042
  11. MAGNESIUM [Concomitant]
     Active Substance: MAGNESIUM
     Indication: Product used for unknown indication
  12. MAGNESIUM OXIDE [Concomitant]
     Active Substance: MAGNESIUM OXIDE
     Indication: Product used for unknown indication
     Dosage: 400 MILLIGRAM, QD
  13. UNSPECIFIED INGREDIENT [Concomitant]
     Active Substance: UNSPECIFIED INGREDIENT
     Indication: Product used for unknown indication
     Route: 042

REACTIONS (1)
  - Maternal exposure during pregnancy [Recovered/Resolved]
